FAERS Safety Report 4450712-9 (Version None)
Quarter: 2004Q3

REPORT INFORMATION
  Report Type: 
  Country: None (occurrence: None)
  Receive Date: 20040915
  Receipt Date: 20040915
  Transmission Date: 20050211
  Serious: Yes (Death)
  Sender: FDA-Public Use
  Company Number: None

PATIENT
  Sex: Male
  Weight: 86.1834 kg

DRUGS (1)
  1. ACTIMMUNE [Suspect]
     Indication: INTERSTITIAL LUNG DISEASE
     Dosage: 100 MCG 3 TIMES/W SUBCUTANEOUS
     Route: 058
     Dates: start: 20030527, end: 20030602

REACTIONS (5)
  - CHILLS [None]
  - DYSPNOEA [None]
  - LUNG DISORDER [None]
  - PALLOR [None]
  - TREMOR [None]
